FAERS Safety Report 10100735 (Version 1)
Quarter: 2014Q2

REPORT INFORMATION
  Report Type: Spontaneous
  Country: US (occurrence: US)
  Receive Date: 20140423
  Receipt Date: 20140423
  Transmission Date: 20141212
  Serious: Yes (Hospitalization)
  Sender: FDA-Public Use
  Company Number: PHEH2014US008010

PATIENT
  Sex: Male

DRUGS (13)
  1. TRILEPTAL [Suspect]
     Dosage: UNK UKN, UNK
  2. FENTANYL [Suspect]
     Dosage: UNK UKN, UNK
  3. FENTANYL [Suspect]
     Dosage: UNK UKN, UNK (EXTRA DOSE)
  4. FENTANYL [Suspect]
     Dosage: UNK UKN, UNK (DOSE REDUCED)
  5. FENTANYL [Suspect]
     Dosage: 100 UNK, UNK
  6. ELAVIL [Suspect]
     Dosage: UNK UKN, UNK
  7. LYRICA [Suspect]
     Dosage: 150 MG, BID
     Dates: start: 20120511
  8. SEROQUEL [Suspect]
     Dosage: UNK UKN, UNK
  9. OXYCODONE [Suspect]
     Dosage: UNK UKN, UNK
  10. RESTORIL [Suspect]
     Dosage: UNK UKN, UNK
  11. CHANTIX [Suspect]
     Dosage: UNK UKN, UNK
  12. ANTIDEPRESSANTS [Concomitant]
     Indication: DEPRESSION
     Dosage: UNK UKN, UNK
  13. NARCOTICS [Concomitant]
     Indication: PAIN
     Dosage: UNK UKN, UNK

REACTIONS (1)
  - Unresponsive to stimuli [Unknown]
